FAERS Safety Report 13330544 (Version 1)
Quarter: 2017Q1

REPORT INFORMATION
  Report Type: Report from Study
  Country: US (occurrence: US)
  Receive Date: 20170314
  Receipt Date: 20170314
  Transmission Date: 20170428
  Serious: Yes (Other)
  Sender: FDA-Public Use
  Company Number: US-AMGEN-USASL2017035790

PATIENT
  Age: 65 Year
  Sex: Male

DRUGS (1)
  1. REPATHA [Suspect]
     Active Substance: EVOLOCUMAB
     Indication: ARTERIAL OCCLUSIVE DISEASE
     Dosage: 140 MG, Q2WK
     Route: 065
     Dates: start: 2016

REACTIONS (9)
  - Throat irritation [Recovering/Resolving]
  - Ear pain [Unknown]
  - Pneumonia viral [Unknown]
  - Nasopharyngitis [Recovering/Resolving]
  - Asthenia [Unknown]
  - Feeling abnormal [Not Recovered/Not Resolved]
  - Sinus pain [Unknown]
  - Eye pain [Unknown]
  - Insomnia [Unknown]

NARRATIVE: CASE EVENT DATE: 2016
